FAERS Safety Report 21490917 (Version 1)
Quarter: 2022Q4

REPORT INFORMATION
  Report Type: Spontaneous
  Country: US (occurrence: US)
  Receive Date: 20221021
  Receipt Date: 20221021
  Transmission Date: 20230113
  Serious: No
  Sender: FDA-Public Use
  Company Number: US-NOVARTISTESTPH-NVSC2022US237215

PATIENT
  Sex: Female

DRUGS (1)
  1. PIQRAY [Suspect]
     Active Substance: ALPELISIB
     Indication: Breast cancer metastatic
     Dosage: UNK (STARTED ABOUT 2.5 WEEKS AGO)
     Route: 065

REACTIONS (3)
  - Hyperglycaemia [Unknown]
  - Nausea [Unknown]
  - Fatigue [Unknown]
